FAERS Safety Report 9412275 (Version 1)
Quarter: 2013Q2

REPORT INFORMATION
  Report Type: Spontaneous
  Country: MX (occurrence: None)
  Receive Date: 20130418
  Receipt Date: 20130418
  Transmission Date: 20140414
  Serious: Yes (Other)
  Sender: FDA-Public Use
  Company Number: ENTC2012-0555

PATIENT
  Age: 73 Year
  Sex: Male

DRUGS (4)
  1. STALEVO (LEVODOPA, CARBIDOPA, ENTACAPONE) [Suspect]
     Indication: PARKINSON^S DISEASE
     Dosage: (100/25/200MG)?
     Route: 048
     Dates: start: 201209, end: 20121123
  2. ASPIRINE [Concomitant]
  3. RANITIDINE [Concomitant]
  4. TEMPRA [Concomitant]

REACTIONS (7)
  - Therapeutic response decreased [None]
  - Tremor [None]
  - Foreign body [None]
  - Anxiety [None]
  - Restlessness [None]
  - Lower limb fracture [None]
  - Accident [None]
